FAERS Safety Report 24238693 (Version 1)
Quarter: 2024Q3

REPORT INFORMATION
  Report Type: Spontaneous
  Country: US (occurrence: US)
  Receive Date: 20240822
  Receipt Date: 20240822
  Transmission Date: 20241017
  Serious: No
  Sender: PFIZER
  Company Number: US-PFIZER INC-PV202400108915

PATIENT
  Age: 70 Year
  Sex: Female
  Weight: 57.2 kg

DRUGS (3)
  1. MORPHINE SULFATE [Suspect]
     Active Substance: MORPHINE SULFATE
     Indication: Abdominal pain
     Dosage: UNK
  2. DISITAMAB VEDOTIN [Concomitant]
     Active Substance: DISITAMAB VEDOTIN
     Indication: Non-small cell lung cancer
     Dosage: UNK
     Route: 042
     Dates: start: 20240813
  3. APIXABAN [Concomitant]
     Active Substance: APIXABAN
     Dosage: UNK

REACTIONS (1)
  - Drug ineffective [Unknown]

NARRATIVE: CASE EVENT DATE: 20240814
